FAERS Safety Report 8529447-9 (Version None)
Quarter: 2012Q3

REPORT INFORMATION
  Report Type: 
  Country: None (occurrence: None)
  Receive Date: 20120723
  Receipt Date: 20120713
  Transmission Date: 20120928
  Serious: Yes (Hospitalization)
  Sender: FDA-Public Use
  Company Number: US-BAYER-2010-004365

PATIENT
  Age: 23 Year
  Sex: Female
  Weight: 58.957 kg

DRUGS (3)
  1. EFFEXOR [Concomitant]
  2. YAZ [Suspect]
     Indication: ORAL CONTRACEPTION
     Route: 048
  3. YASMIN [Suspect]
     Indication: ORAL CONTRACEPTION
     Dosage: UNK
     Route: 048
     Dates: start: 20010101, end: 20080101

REACTIONS (3)
  - DEEP VEIN THROMBOSIS [None]
  - THROMBOSIS [None]
  - PAIN [None]
